FAERS Safety Report 4652230-1 (Version None)
Quarter: 2005Q2

REPORT INFORMATION
  Report Type: 
  Country: None (occurrence: None)
  Receive Date: 20050502
  Receipt Date: 20050418
  Transmission Date: 20051028
  Serious: Yes (Other)
  Sender: FDA-Public Use
  Company Number: 2005064095

PATIENT

DRUGS (2)
  1. BEXTRA [Suspect]
     Indication: PAIN
     Dosage: 40 MG ORAL
     Route: 048
     Dates: start: 20050301, end: 20050301
  2. GATIFLOXACIN [Concomitant]

REACTIONS (2)
  - MYALGIA [None]
  - SKIN EXFOLIATION [None]
